FAERS Safety Report 5504555-5 (Version None)
Quarter: 2007Q4

REPORT INFORMATION
  Report Type: 
  Country: None (occurrence: None)
  Receive Date: 20071031
  Receipt Date: 20071019
  Transmission Date: 20080405
  Serious: Yes (Death)
  Sender: FDA-Public Use
  Company Number: 2007001975

PATIENT
  Age: 59 Year
  Sex: Female
  Weight: 74.9796 kg

DRUGS (3)
  1. ERLOTINIB (ERLOTINIB HCL) (TABLET) (ERLOTINIB HCL) [Suspect]
     Dosage: 150 MG QD ORAL
     Route: 048
     Dates: start: 20051004, end: 20070102
  2. OMEPRAZOLE [Concomitant]
  3. ESTAZOCAN [Concomitant]

REACTIONS (1)
  - SUDDEN DEATH [None]
